FAERS Safety Report 8101176-5 (Version None)
Quarter: 2012Q1

REPORT INFORMATION
  Report Type: 
  Country: None (occurrence: None)
  Receive Date: 20120129
  Receipt Date: 20111013
  Transmission Date: 20120608
  Serious: No
  Sender: FDA-Public Use
  Company Number: US-ABBOTT-11P-163-0863892-00

PATIENT
  Age: 73 Year
  Sex: Female

DRUGS (5)
  1. VALTREX [Concomitant]
     Indication: HERPES VIRUS INFECTION
  2. CYMBALTA [Concomitant]
     Indication: DEPRESSION
  3. HUMIRA [Suspect]
     Indication: PSORIASIS
     Dates: start: 20101001
  4. ABILIFY [Concomitant]
     Indication: ANXIETY
  5. UNKNOWN BLOOD PRESSURE MEDICATION [Concomitant]
     Indication: HYPERTENSION

REACTIONS (3)
  - INJECTION SITE PAIN [None]
  - INCORRECT ROUTE OF DRUG ADMINISTRATION [None]
  - INJECTION SITE HAEMORRHAGE [None]
